FAERS Safety Report 12345981 (Version 1)
Quarter: 2016Q2

REPORT INFORMATION
  Report Type: Spontaneous
  Country: PE (occurrence: PE)
  Receive Date: 20160509
  Receipt Date: 20160509
  Transmission Date: 20160815
  Serious: Yes (Other)
  Sender: FDA-Public Use
  Company Number: PE-TEVA-658384ISR

PATIENT
  Age: 37 Year
  Sex: Male

DRUGS (1)
  1. ISOFLOXX [Suspect]
     Active Substance: LEVOFLOXACIN
     Dosage: 500 MG
     Route: 048

REACTIONS (2)
  - Delirium [Recovered/Resolved]
  - Myalgia [Recovering/Resolving]

NARRATIVE: CASE EVENT DATE: 20160406
